FAERS Safety Report 9927823 (Version 1)
Quarter: 2014Q1

REPORT INFORMATION
  Report Type: Spontaneous
  Country: FR (occurrence: None)
  Receive Date: 20140220
  Receipt Date: 20140220
  Transmission Date: 20141002
  Serious: Yes (Death, Life-Threatening)
  Sender: FDA-Public Use
  Company Number: 2014FR00110

PATIENT
  Sex: 0

DRUGS (2)
  1. GEMCITABINE INJECTION [Suspect]
     Indication: NEOPLASM
     Dosage: 1,000 MG/M2, GIVEN AS A 30-MIN INFUSION DAYS 2 AND 9, INFUSION
  2. MSC1992371A [Suspect]
     Indication: NEOPLASM
     Dosage: 10 MG/M2/DAY  ON DAYS 1 AND 8, ORAL
     Route: 048

REACTIONS (3)
  - Multi-organ failure [None]
  - Neutropenia [None]
  - Sepsis [None]
